FAERS Safety Report 4352169-5 (Version None)
Quarter: 2004Q2

REPORT INFORMATION
  Report Type: 
  Country: None (occurrence: None)
  Receive Date: 20040428
  Receipt Date: 20040419
  Transmission Date: 20050107
  Serious: Yes (Death, Life-Threatening, Hospitalization)
  Sender: FDA-Public Use
  Company Number: 2004-04-0055

PATIENT
  Age: 63 Year
  Sex: Male

DRUGS (5)
  1. TEMODAL [Suspect]
     Indication: GLIOBLASTOMA
     Dosage: 370 MG QD ORAL
     Route: 048
     Dates: start: 20040305, end: 20040309
  2. FORTECORTIN [Concomitant]
  3. DECADRON [Concomitant]
  4. NEOSIDANTOINA [Concomitant]
  5. OMEPRAZOLE [Concomitant]

REACTIONS (9)
  - ANAEMIA [None]
  - BLOOD GLUCOSE INCREASED [None]
  - BONE MARROW DEPRESSION [None]
  - COMA [None]
  - EPISTAXIS [None]
  - HAEMORRHAGE [None]
  - LEUKOPENIA [None]
  - PURPURA [None]
  - THROMBOCYTOPENIA [None]
